FAERS Safety Report 5038327-5 (Version None)
Quarter: 2006Q2

REPORT INFORMATION
  Report Type: 
  Country: None (occurrence: None)
  Receive Date: 20060627
  Receipt Date: 20060627
  Transmission Date: 20061013
  Serious: Yes (Hospitalization)
  Sender: FDA-Public Use
  Company Number: None

PATIENT
  Age: 60 Year
  Sex: Male
  Weight: 67.1324 kg

DRUGS (14)
  1. GLIPIZIDE [Suspect]
     Indication: DIABETES MELLITUS NON-INSULIN-DEPENDENT
     Dosage: INCREASE 8 MG ROSI (5/19/06)
     Dates: start: 20050815
  2. GLIPIZIDE [Suspect]
     Indication: DIABETES MELLITUS NON-INSULIN-DEPENDENT
     Dosage: INCREASE 8 MG ROSI (5/19/06)
     Dates: start: 20060519
  3. ALENRONATE [Concomitant]
  4. CALCIUM GLUCONATE [Concomitant]
  5. CITALOPRAM [Concomitant]
  6. M.V.I. [Concomitant]
  7. LISINOPRIL [Concomitant]
  8. NALHEXONE [Concomitant]
  9. NAPROXEN [Concomitant]
  10. THIAMINE [Concomitant]
  11. TRAZODONE HCL [Concomitant]
  12. ASPIRIN [Concomitant]
  13. SIMVASTATIN [Concomitant]
  14. ROSIGLITAZONE [Suspect]
     Dates: start: 20050923

REACTIONS (2)
  - HYPOGLYCAEMIA [None]
  - ORAL INTAKE REDUCED [None]
